FAERS Safety Report 5884753-1 (Version None)
Quarter: 2008Q3

REPORT INFORMATION
  Report Type: 
  Country: None (occurrence: None)
  Receive Date: 20080912
  Receipt Date: 20080826
  Transmission Date: 20090109
  Serious: Yes (Hospitalization)
  Sender: FDA-Public Use
  Company Number: CFNT-278

PATIENT
  Sex: Male

DRUGS (10)
  1. MEIACT MS (CEFDITOREN PIVOXIL) [Suspect]
     Indication: MEDIASTINITIS
     Dosage: 200 MG ORALLY
     Route: 048
     Dates: start: 20080419, end: 20080603
  2. SULBACILLIN (SULBACTAM SODIUM AND AMPICILLIN SODIUM) [Suspect]
     Indication: MEDIASTINITIS
     Dosage: 3.0 G IV
     Route: 042
     Dates: start: 20080419, end: 20080429
  3. ASPIRIN [Concomitant]
  4. FUROSEMIDE [Concomitant]
  5. ALLOPURINOL [Concomitant]
  6. SPIRONOLACTONE [Concomitant]
  7. FENOFIBRATE [Concomitant]
  8. WARFARIN SODIUM [Concomitant]
  9. ISOSORBIDE MONONITRATE [Concomitant]
  10. FAMOTIDINE [Concomitant]

REACTIONS (1)
  - HENOCH-SCHONLEIN PURPURA [None]
